FAERS Safety Report 6523170-8 (Version None)
Quarter: 2009Q4

REPORT INFORMATION
  Report Type: 
  Country: None (occurrence: None)
  Receive Date: 20091222
  Receipt Date: 20091209
  Transmission Date: 20100525
  Serious: Yes (Other)
  Sender: FDA-Public Use
  Company Number: IDR-00334

PATIENT
  Age: 51 Year
  Sex: Male

DRUGS (4)
  1. PROPRANOLOL [Suspect]
     Indication: ESSENTIAL TREMOR
     Dosage: 320 MG DAILY ORAL FORMULATION: CAPSULE CONTR REL
     Route: 048
  2. CRESTOR [Suspect]
     Indication: DYSLIPIDAEMIA
     Dosage: ORAL FORMULATION: TABLET
     Route: 048
     Dates: start: 20070101
  3. MUTAGRIP (INFLUENZA VACCINE) (INFLUENZA VACCINE) [Suspect]
     Indication: ANTIVIRAL PROPHYLAXIS
     Dosage: SINGLE DOSE INTRAMUSCULAR FORMULATION: INJECTION
     Route: 030
     Dates: start: 20090929, end: 20090929
  4. ASPIRIN [Suspect]
     Indication: PROPHYLAXIS
     Dosage: 160 MG DAILY ORAL FORMULATION: UNKNOWN
     Route: 048

REACTIONS (4)
  - DEAFNESS NEUROSENSORY [None]
  - DYSLIPIDAEMIA [None]
  - EYE PAIN [None]
  - TINNITUS [None]
